FAERS Safety Report 5193590-5 (Version None)
Quarter: 2006Q4

REPORT INFORMATION
  Report Type: 
  Country: None (occurrence: None)
  Receive Date: 20061228
  Receipt Date: 20060925
  Transmission Date: 20070319
  Serious: No
  Sender: FDA-Public Use
  Company Number: US-GLAXOSMITHKLINE-A0621309A

PATIENT
  Age: 59 Year
  Sex: Female

DRUGS (2)
  1. FLUTICASONE PROPIONATE [Suspect]
     Dosage: 50MCG PER DAY
     Route: 045
     Dates: start: 20051101
  2. ZYRTEC [Concomitant]

REACTIONS (5)
  - DIZZINESS [None]
  - EYE IRRITATION [None]
  - HEADACHE [None]
  - PHARYNGOLARYNGEAL PAIN [None]
  - RHINORRHOEA [None]
